FAERS Safety Report 17370167 (Version 1)
Quarter: 2020Q1

REPORT INFORMATION
  Report Type: Spontaneous
  Country: US (occurrence: US)
  Receive Date: 20200205
  Receipt Date: 20200205
  Transmission Date: 20200409
  Serious: Yes (Other)
  Sender: FDA-Public Use
  Company Number: US-CIPLA LTD.-2020US00706

PATIENT

DRUGS (3)
  1. METOPROLOL. [Suspect]
     Active Substance: METOPROLOL
     Dosage: UNK
     Route: 064
  2. METHIMAZOLE. [Suspect]
     Active Substance: METHIMAZOLE
     Indication: HYPOTHYROIDISM
     Dosage: UNK
     Route: 064
  3. METHIMAZOLE. [Suspect]
     Active Substance: METHIMAZOLE
     Indication: PROPHYLAXIS

REACTIONS (5)
  - Low birth weight baby [Unknown]
  - Neonatal respiratory distress syndrome [Unknown]
  - Foetal exposure during pregnancy [Unknown]
  - Premature baby [Unknown]
  - Bronchopulmonary dysplasia [Unknown]
